FAERS Safety Report 4707310-9 (Version None)
Quarter: 2005Q3

REPORT INFORMATION
  Report Type: 
  Country: None (occurrence: None)
  Receive Date: 20050706
  Receipt Date: 20050629
  Transmission Date: 20060218
  Serious: Yes (Other)
  Sender: FDA-Public Use
  Company Number: US-MERCK-0506USA04337

PATIENT
  Sex: Male

DRUGS (2)
  1. VIOXX [Suspect]
     Indication: PAIN
     Route: 048
     Dates: start: 20040201, end: 20040901
  2. VIOXX [Suspect]
     Route: 048
     Dates: start: 20040201, end: 20040901

REACTIONS (2)
  - ANGINA PECTORIS [None]
  - PRESCRIBED OVERDOSE [None]
